FAERS Safety Report 4720346-7 (Version None)
Quarter: 2005Q3

REPORT INFORMATION
  Report Type: 
  Country: None (occurrence: None)
  Receive Date: 20050721
  Receipt Date: 20050711
  Transmission Date: 20060218
  Serious: Yes (Other)
  Sender: FDA-Public Use
  Company Number: US-MERCK-0507USA01616

PATIENT

DRUGS (2)
  1. VIOXX [Suspect]
     Route: 048
     Dates: start: 20010301, end: 20030501
  2. VIOXX [Suspect]
     Route: 065
     Dates: start: 20001001, end: 20030901

REACTIONS (1)
  - MYOCARDIAL INFARCTION [None]
